FAERS Safety Report 24229124 (Version 1)
Quarter: 2024Q3

REPORT INFORMATION
  Report Type: Report from Study
  Country: DE (occurrence: DE)
  Receive Date: 20240820
  Receipt Date: 20240820
  Transmission Date: 20241017
  Serious: No
  Sender: TAKEDA
  Company Number: DE-TAKEDA-2024TUS082907

PATIENT
  Age: 61 Year
  Sex: Male

DRUGS (12)
  1. TEDUGLUTIDE [Suspect]
     Active Substance: TEDUGLUTIDE
     Indication: Short-bowel syndrome
     Dosage: 3.65 MILLIGRAM, QD
     Route: 042
     Dates: start: 20160825, end: 201702
  2. TEDUGLUTIDE [Suspect]
     Active Substance: TEDUGLUTIDE
     Indication: Short-bowel syndrome
     Dosage: 3.65 MILLIGRAM, QD
     Route: 042
     Dates: start: 20160825, end: 201702
  3. TEDUGLUTIDE [Suspect]
     Active Substance: TEDUGLUTIDE
     Indication: Short-bowel syndrome
     Dosage: 3.65 MILLIGRAM, QD
     Route: 042
     Dates: start: 20160825, end: 201702
  4. TEDUGLUTIDE [Suspect]
     Active Substance: TEDUGLUTIDE
     Indication: Short-bowel syndrome
     Dosage: 3.65 MILLIGRAM, QD
     Route: 042
     Dates: start: 20160825, end: 201702
  5. TEDUGLUTIDE [Suspect]
     Active Substance: TEDUGLUTIDE
     Dosage: 3.85 MILLIGRAM, QD
     Route: 042
     Dates: start: 201702
  6. TEDUGLUTIDE [Suspect]
     Active Substance: TEDUGLUTIDE
     Dosage: 3.85 MILLIGRAM, QD
     Route: 042
     Dates: start: 201702
  7. TEDUGLUTIDE [Suspect]
     Active Substance: TEDUGLUTIDE
     Dosage: 3.85 MILLIGRAM, QD
     Route: 042
     Dates: start: 201702
  8. TEDUGLUTIDE [Suspect]
     Active Substance: TEDUGLUTIDE
     Dosage: 3.85 MILLIGRAM, QD
     Route: 042
     Dates: start: 201702
  9. PROPOFOL [Concomitant]
     Active Substance: PROPOFOL
     Dosage: 500 MILLIGRAM, QD
     Route: 042
     Dates: start: 20240803, end: 20240803
  10. PROPOFOL [Concomitant]
     Active Substance: PROPOFOL
     Dosage: 550 MILLIGRAM, QD
     Route: 042
     Dates: start: 20240808, end: 20240808
  11. CYANOCOBALAMIN [Concomitant]
     Active Substance: CYANOCOBALAMIN
     Indication: Vitamin B12 deficiency
     Dosage: 10 MICROGRAM, QD
     Route: 048
     Dates: start: 20230224, end: 2023
  12. MAGNESIUM [Concomitant]
     Active Substance: MAGNESIUM
     Indication: Magnesium deficiency
     Dosage: UNK UNK, BID
     Route: 048
     Dates: start: 20230222

REACTIONS (2)
  - Gastrointestinal wall abnormal [Not Recovered/Not Resolved]
  - Gastric polyps [Recovered/Resolved]

NARRATIVE: CASE EVENT DATE: 20240808
